FAERS Safety Report 5859441-8 (Version None)
Quarter: 2008Q3

REPORT INFORMATION
  Report Type: 
  Country: None (occurrence: None)
  Receive Date: 20080826
  Receipt Date: 20080826
  Transmission Date: 20090109
  Serious: Yes (Life-Threatening, Hospitalization)
  Sender: FDA-Public Use
  Company Number: None

PATIENT
  Age: 63 Year
  Sex: Female

DRUGS (1)
  1. REQUIP [Suspect]

REACTIONS (4)
  - BONE PAIN [None]
  - MUSCULAR WEAKNESS [None]
  - RESPIRATORY DEPRESSION [None]
  - SOMNOLENCE [None]
